FAERS Safety Report 4263511-8 (Version None)
Quarter: 2004Q1

REPORT INFORMATION
  Report Type: 
  Country: None (occurrence: None)
  Receive Date: 20040105
  Receipt Date: 20031225
  Transmission Date: 20041129
  Serious: Yes (Death, Hospitalization)
  Sender: FDA-Public Use
  Company Number: JP-BRISTOL-MYERS SQUIBB COMPANY-12465589

PATIENT
  Age: 70 Year
  Sex: Male

DRUGS (9)
  1. TAXOL [Suspect]
     Indication: LUNG NEOPLASM MALIGNANT
     Route: 042
     Dates: start: 20020404, end: 20020404
  2. PARAPLATIN [Suspect]
     Indication: LUNG NEOPLASM MALIGNANT
     Route: 042
     Dates: start: 20020404, end: 20020418
  3. ZOLPIDEM TARTRATE [Concomitant]
     Route: 048
     Dates: start: 20020328, end: 20020421
  4. AMBROXOL HCL [Concomitant]
     Route: 048
     Dates: start: 20020328, end: 20020421
  5. FAMOTIDINE [Concomitant]
     Route: 048
     Dates: start: 20020328, end: 20020421
  6. ITOPRIDE HCL [Concomitant]
     Route: 048
     Dates: start: 20020328, end: 20020421
  7. TRANEXAMIC ACID [Concomitant]
     Route: 048
     Dates: start: 20020328, end: 20020409
  8. NAPROXEN [Concomitant]
     Route: 048
     Dates: start: 20020328, end: 20020423
  9. AZULENE SULFONATE SODIUM [Concomitant]
     Route: 048
     Dates: start: 20020328, end: 20020409

REACTIONS (8)
  - DIARRHOEA [None]
  - FATIGUE [None]
  - FEBRILE NEUTROPENIA [None]
  - HYPOXIA [None]
  - PNEUMONIA [None]
  - PNEUMOTHORAX [None]
  - RESPIRATORY FAILURE [None]
  - TUMOUR NECROSIS [None]
